FAERS Safety Report 5315249-3 (Version None)
Quarter: 2007Q2

REPORT INFORMATION
  Report Type: 
  Country: None (occurrence: None)
  Receive Date: 20070502
  Receipt Date: 20070420
  Transmission Date: 20071010
  Serious: Yes (Death)
  Sender: FDA-Public Use
  Company Number: FR-PFIZER INC-2007031945

PATIENT
  Age: 60 Year
  Sex: Female

DRUGS (5)
  1. ALDACTONE [Suspect]
     Route: 048
     Dates: start: 19990224, end: 20020210
  2. ELISOR [Suspect]
     Route: 048
     Dates: start: 19990914, end: 20020125
  3. MEDIATOR [Suspect]
     Route: 048
     Dates: start: 19980320, end: 20020210
  4. EUTHYRAL [Concomitant]
     Dates: start: 19980908
  5. LEXOMIL [Concomitant]
     Dates: start: 20010419

REACTIONS (1)
  - INTERSTITIAL LUNG DISEASE [None]
